FAERS Safety Report 21908277 (Version 1)
Quarter: 2023Q1

REPORT INFORMATION
  Report Type: Spontaneous
  Country: IT (occurrence: IT)
  Receive Date: 20230125
  Receipt Date: 20230125
  Transmission Date: 20230418
  Serious: Yes (Hospitalization)
  Sender: FDA-Public Use
  Company Number: None

PATIENT
  Age: 68 Year
  Sex: Male

DRUGS (4)
  1. TAMSULOSIN HYDROCHLORIDE [Suspect]
     Active Substance: TAMSULOSIN HYDROCHLORIDE
     Indication: Prostatitis
     Dosage: 1 DOSAGE FORM, QD (DOSAGGIO: 1 UNITA DI MISURA: UNITA POSOLOGICA FREQUENZA SOMMINISTRAZIONE: QUOTIDI
     Route: 048
  2. EDOXABAN TOSYLATE [Concomitant]
     Active Substance: EDOXABAN TOSYLATE
     Indication: Arrhythmia
     Dosage: 1 DOSAGE FORM (DOSAGGIO: 1 UNITA DI MISURA: UNITA POSOLOGICA)
     Route: 048
  3. ESOMEPRAZOLE [Concomitant]
     Active Substance: ESOMEPRAZOLE
     Indication: Abdominal pain
     Dosage: 1 DOSAGE FORM (DOSAGGIO: 1 UNITA DI MISURA: UNITA POSOLOGICA)
     Route: 065
  4. FLECAINIDE [Concomitant]
     Active Substance: FLECAINIDE
     Indication: Arrhythmia
     Dosage: 1 DOSAGE FORM (DOSAGGIO: 1 UNITA DI MISURA: UNITA POSOLOGICA)
     Route: 065

REACTIONS (2)
  - Drug hypersensitivity [Recovering/Resolving]
  - Rash pruritic [Recovering/Resolving]

NARRATIVE: CASE EVENT DATE: 20220821
